FAERS Safety Report 4459443-2 (Version None)
Quarter: 2004Q3

REPORT INFORMATION
  Report Type: 
  Country: None (occurrence: None)
  Receive Date: 20040927
  Receipt Date: 20040914
  Transmission Date: 20050211
  Serious: Yes (Death, Other)
  Sender: FDA-Public Use
  Company Number: HQWYE121720SEP04

PATIENT
  Sex: Female

DRUGS (5)
  1. ENBREL [Suspect]
     Indication: JUVENILE ARTHRITIS
     Dates: start: 20010101, end: 20020101
  2. ENBREL [Suspect]
     Dates: end: 20020101
  3. REMICADE [Suspect]
     Dates: start: 20020101
  4. METHOTREXATE [Concomitant]
     Dosage: HIGH-DOSE, FREQUENCY UNKNOWN
  5. METHYLPREDNISOLONE [Concomitant]
     Dosage: PULSE THERAPY

REACTIONS (14)
  - CARDIAC ARREST [None]
  - CATHETER RELATED INFECTION [None]
  - CENTRAL VENOUS PRESSURE INCREASED [None]
  - CUTANEOUS TUBERCULOSIS [None]
  - DIFFUSE ALVEOLAR DAMAGE [None]
  - DRUG INEFFECTIVE [None]
  - ENTEROBACTER INFECTION [None]
  - ESCHERICHIA INFECTION [None]
  - LUNG INFILTRATION [None]
  - LYMPHOCYTIC INFILTRATION [None]
  - PNEUMONIA LIPOID [None]
  - POST PROCEDURAL COMPLICATION [None]
  - RESPIRATORY FAILURE [None]
  - SHOCK [None]
